FAERS Safety Report 16526134 (Version 1)
Quarter: 2019Q3

REPORT INFORMATION
  Report Type: Other
  Country: AU (occurrence: AU)
  Receive Date: 20190703
  Receipt Date: 20190703
  Transmission Date: 20191004
  Serious: Yes (Other)
  Sender: FDA-Public Use
  Company Number: AU-VISTAPHARM, INC.-VER201906-000424

PATIENT
  Sex: Female

DRUGS (2)
  1. PREDNISOLONE. [Suspect]
     Active Substance: PREDNISOLONE
     Indication: IMMUNOSUPPRESSION
     Dosage: 5.2 MG/ME2 (12 MONTH POST-TRANSPLANT)
     Route: 048
  2. PREDNISOLONE. [Suspect]
     Active Substance: PREDNISOLONE
     Dosage: 2.4 MG/ME2 (6 TO 24 MONTH POST TRANSPLANT; TOTAL 730 DAYS)
     Route: 048

REACTIONS (1)
  - Adrenal insufficiency [Recovered/Resolved]
